FAERS Safety Report 20710767 (Version 6)
Quarter: 2023Q4

REPORT INFORMATION
  Report Type: Spontaneous
  Country: US (occurrence: US)
  Receive Date: 20220414
  Receipt Date: 20231103
  Transmission Date: 20240109
  Serious: No
  Sender: FDA-Public Use
  Company Number: US-MYOVANT SCIENCES GMBH-2022MYSCI0100535

PATIENT
  Age: 78 Year
  Sex: Male

DRUGS (18)
  1. ORGOVYX [Suspect]
     Active Substance: RELUGOLIX
     Indication: Prostate cancer
     Dosage: 360 MILLIGRAM, ONE TIME DOSE
     Route: 048
     Dates: start: 20220122, end: 20220122
  2. ORGOVYX [Suspect]
     Active Substance: RELUGOLIX
     Dosage: 120 MILLIGRAM, QD
     Route: 048
     Dates: start: 20220123, end: 20230604
  3. ORGOVYX [Suspect]
     Active Substance: RELUGOLIX
     Dosage: UNK
  4. METOPROLOL TARTRATE [Concomitant]
     Active Substance: METOPROLOL TARTRATE
     Indication: Aortic valve replacement
     Dosage: UNK, BID
     Route: 048
  5. METOPROLOL TARTRATE [Concomitant]
     Active Substance: METOPROLOL TARTRATE
     Indication: Vascular graft
     Dosage: UNK, QD
     Route: 048
  6. METOPROLOL TARTRATE [Concomitant]
     Active Substance: METOPROLOL TARTRATE
     Indication: Hypertension
  7. LISINOPRIL AND HYDROCHLOROTHIAZIDE [Concomitant]
     Active Substance: HYDROCHLOROTHIAZIDE\LISINOPRIL
     Indication: Hypertension
     Dosage: 20 MILLIGRAM/12.5 MILLIGRAM, QD
     Route: 048
  8. ASPIRIN [Concomitant]
     Active Substance: ASPIRIN
     Indication: Prophylaxis
     Dosage: UNK UNK, QD
     Route: 048
  9. VASCEPA [Concomitant]
     Active Substance: ICOSAPENT ETHYL
     Indication: Blood triglycerides abnormal
     Dosage: FISH OIL, 1 GRAM, BID
     Route: 048
  10. VASCEPA [Concomitant]
     Active Substance: ICOSAPENT ETHYL
     Indication: Cardiac disorder
  11. ERGOCALCIFEROL [Concomitant]
     Active Substance: ERGOCALCIFEROL
     Indication: Vitamin supplementation
     Dosage: 2000 MILLIGRAM, QD
     Route: 048
  12. VITAMIN B [Concomitant]
     Active Substance: VITAMIN B
     Indication: Vitamin supplementation
     Dosage: 100 MILLIGRAM, QD
     Route: 048
  13. VITALINE                           /01490701/ [Concomitant]
     Indication: Product used for unknown indication
     Dosage: UNK
     Route: 065
  14. COENZIME Q10 [Concomitant]
     Indication: Vitamin supplementation
     Dosage: UNK
     Route: 065
  15. ROSUVASTATIN [Concomitant]
     Active Substance: ROSUVASTATIN
     Indication: Blood cholesterol increased
     Dosage: 40 MILLIGRAM, QD
     Route: 048
  16. CALCIUM [Concomitant]
     Active Substance: CALCIUM
     Indication: Product used for unknown indication
     Dosage: UNK
     Route: 065
  17. TAMSULOSIN HYDROCHLORIDE [Concomitant]
     Active Substance: TAMSULOSIN HYDROCHLORIDE
     Indication: Product used for unknown indication
     Dosage: UNK
     Route: 065
  18. MAGNESIUM [Concomitant]
     Active Substance: MAGNESIUM
     Indication: Mineral supplementation
     Dosage: UNK, QD
     Route: 048

REACTIONS (12)
  - Increased appetite [Unknown]
  - Low density lipoprotein increased [Unknown]
  - Blood glucose increased [Not Recovered/Not Resolved]
  - Hot flush [Not Recovered/Not Resolved]
  - Diarrhoea [Not Recovered/Not Resolved]
  - Blood triglycerides increased [Not Recovered/Not Resolved]
  - Night sweats [Unknown]
  - Weight increased [Unknown]
  - Back pain [Unknown]
  - Haematochezia [Not Recovered/Not Resolved]
  - Therapy interrupted [Unknown]
  - Inability to afford medication [Unknown]

NARRATIVE: CASE EVENT DATE: 20220123
